FAERS Safety Report 12524843 (Version 2)
Quarter: 2017Q2

REPORT INFORMATION
  Report Type: Report from Study
  Country: CA (occurrence: CA)
  Receive Date: 20160704
  Receipt Date: 20170614
  Transmission Date: 20170830
  Serious: Yes (Hospitalization)
  Sender: FDA-Public Use
  Company Number: PHHO2011CA024812

PATIENT
  Age: 67 Year
  Sex: Female
  Weight: 73 kg

DRUGS (3)
  1. CYCLOPHOSPHAMIDE. [Suspect]
     Active Substance: CYCLOPHOSPHAMIDE
     Indication: CHRONIC LYMPHOCYTIC LEUKAEMIA
     Dosage: 250MG/M2 DAYS 1-3 EVERY 28 DAYS FOR 6 CYCLES
     Route: 042
     Dates: start: 20100929, end: 20110120
  2. OFATUMUMAB [Suspect]
     Active Substance: OFATUMUMAB
     Indication: CHRONIC LYMPHOCYTIC LEUKAEMIA
     Dosage: 300 MG DAY 1, 1000 MG DAY 8 THEN CYCLES 2-6, AND 1000 MG ON DAY 1 EVERY 28 DAYS
     Route: 042
     Dates: start: 20100928, end: 20110118
  3. FLUDARABINE PHOSPHATE. [Suspect]
     Active Substance: FLUDARABINE PHOSPHATE
     Indication: CHRONIC LYMPHOCYTIC LEUKAEMIA
     Dosage: 25 MG/M2, UNK
     Route: 042
     Dates: start: 20100929, end: 20110120

REACTIONS (1)
  - Pneumonia respiratory syncytial viral [Recovered/Resolved]

NARRATIVE: CASE EVENT DATE: 20110205
